FAERS Safety Report 25634498 (Version 5)
Quarter: 2025Q3

REPORT INFORMATION
  Report Type: Spontaneous
  Country: US (occurrence: US)
  Receive Date: 20250801
  Receipt Date: 20250923
  Transmission Date: 20251020
  Serious: Yes (Hospitalization, Other)
  Sender: ABBVIE
  Company Number: US-ABBVIE-6397579

PATIENT
  Age: 23 Year
  Sex: Female

DRUGS (10)
  1. SKYRIZI [Suspect]
     Active Substance: RISANKIZUMAB-RZAA
     Indication: Psoriatic arthropathy
     Route: 058
     Dates: start: 2025
  2. SKYRIZI [Suspect]
     Active Substance: RISANKIZUMAB-RZAA
     Indication: Psoriasis
     Route: 058
  3. ALLEGRA [Concomitant]
     Active Substance: FEXOFENADINE HYDROCHLORIDE
     Indication: Product used for unknown indication
     Route: 048
  4. CORTISONE [Concomitant]
     Active Substance: CORTISONE
     Indication: Product used for unknown indication
     Dosage: AS DIRECTED
     Route: 048
  5. ERYTHROMYCIN [Concomitant]
     Active Substance: ERYTHROMYCIN
     Indication: Product used for unknown indication
  6. FAMOTIDINE [Concomitant]
     Active Substance: FAMOTIDINE
     Indication: Product used for unknown indication
     Route: 048
  7. HALOBETASOL PROPIONATE [Concomitant]
     Active Substance: HALOBETASOL PROPIONATE
     Indication: Product used for unknown indication
  8. IRON [Concomitant]
     Active Substance: IRON
     Indication: Product used for unknown indication
  9. TRIAMCINOLONE ACETONIDE [Concomitant]
     Active Substance: TRIAMCINOLONE ACETONIDE
     Indication: Product used for unknown indication
  10. VOLTAREN [Concomitant]
     Active Substance: DICLOFENAC SODIUM
     Indication: Product used for unknown indication

REACTIONS (20)
  - Rash vesicular [Not Recovered/Not Resolved]
  - Rash [Not Recovered/Not Resolved]
  - Stevens-Johnson syndrome [Recovering/Resolving]
  - Vaginal lesion [Not Recovered/Not Resolved]
  - Papule [Unknown]
  - Flushing [Unknown]
  - Urticaria [Unknown]
  - Lip swelling [Unknown]
  - Generalised oedema [Unknown]
  - Skin lesion [Not Recovered/Not Resolved]
  - Oral disorder [Recovering/Resolving]
  - White blood cell count decreased [Not Recovered/Not Resolved]
  - Skin haemorrhage [Unknown]
  - Mouth haemorrhage [Unknown]
  - Dermatitis [Unknown]
  - Dermatitis bullous [Unknown]
  - Erythema multiforme [Unknown]
  - Epidermal necrosis [Unknown]
  - Mucosal disorder [Unknown]
  - Injection site rash [Recovering/Resolving]

NARRATIVE: CASE EVENT DATE: 20250101
